FAERS Safety Report 5135458-6 (Version None)
Quarter: 2006Q4

REPORT INFORMATION
  Report Type: 
  Country: None (occurrence: None)
  Receive Date: 20061024
  Receipt Date: 20061024
  Transmission Date: 20070319
  Serious: Yes (Hospitalization)
  Sender: FDA-Public Use
  Company Number: None

PATIENT
  Age: 63 Year
  Sex: Male
  Weight: 73.3 kg

DRUGS (4)
  1. VARDENAFIL [Suspect]
     Indication: SEXUAL DYSFUNCTION
     Dosage: 10 MG  DAILY  PRN
  2. BUPROPION HCL [Concomitant]
  3. RANITIDINE HCL [Concomitant]
  4. FLUOCINONIDE [Concomitant]

REACTIONS (3)
  - DIZZINESS [None]
  - NAUSEA [None]
  - VOMITING [None]
